FAERS Safety Report 9542019 (Version 1)
Quarter: 2013Q3

REPORT INFORMATION
  Report Type: Report from Study
  Country: CA (occurrence: CA)
  Receive Date: 20130923
  Receipt Date: 20130923
  Transmission Date: 20140515
  Serious: Yes (Other)
  Sender: FDA-Public Use
  Company Number: CA-JNJFOC-20130908752

PATIENT
  Age: 30 Year
  Sex: Male
  Weight: 119.1 kg

DRUGS (4)
  1. REMICADE [Suspect]
     Indication: CROHN^S DISEASE
     Route: 042
     Dates: start: 20130201
  2. ASACOL [Concomitant]
     Route: 065
  3. IMURAN [Concomitant]
     Route: 065
  4. SYNTHROID [Concomitant]
     Route: 065

REACTIONS (3)
  - Carpal tunnel syndrome [Unknown]
  - Limb injury [Recovered/Resolved]
  - Fall [Recovered/Resolved]
